FAERS Safety Report 9385956 (Version 1)
Quarter: 2013Q3

REPORT INFORMATION
  Report Type: Spontaneous
  Country: JP (occurrence: JP)
  Receive Date: 20130705
  Receipt Date: 20130705
  Transmission Date: 20140515
  Serious: Yes (Other)
  Sender: FDA-Public Use
  Company Number: JP-SANOFI-AVENTIS-2013SA067762

PATIENT
  Age: 58 Year
  Sex: Female

DRUGS (3)
  1. MYSLEE [Suspect]
     Indication: INSOMNIA
     Route: 048
     Dates: end: 201306
  2. BAYASPIRIN [Concomitant]
     Dosage: ENTERICFORM
  3. GLUCOSAMINE [Concomitant]

REACTIONS (4)
  - Upper limb fracture [Recovered/Resolved]
  - Fall [Unknown]
  - Dizziness [Recovering/Resolving]
  - Diplopia [Recovering/Resolving]
